FAERS Safety Report 7672186 (Version 4)
Quarter: 2013Q4

REPORT INFORMATION
  Report Type: Spontaneous
  Country: US (occurrence: US)
  Receive Date: 20101117
  Receipt Date: 20131203
  Transmission Date: 20140711
  Serious: Yes (Other)
  Sender: FDA-Public Use
  Company Number: US-BAYER-201040360NA

PATIENT
  Age: 64 Year
  Sex: Female
  Weight: 64 kg

DRUGS (30)
  1. TRASYLOL [Suspect]
     Indication: CORONARY ARTERY BYPASS
     Dosage: 1 ML, UNK
     Route: 042
     Dates: start: 20060816, end: 20060816
  2. TRASYLOL [Suspect]
     Indication: CORONARY ARTERY BYPASS
     Dosage: 2 MILLION UNIT PUMP PRIME
     Route: 042
  3. TRASYLOL [Suspect]
     Indication: CORONARY ARTERY BYPASS
     Dosage: 50 ML/HR INFUSION
  4. PLASMA, FRESH FROZEN [Concomitant]
     Dosage: 2 U, UNK
  5. PACKED RED BLOOD CELLS [Concomitant]
     Dosage: 5 U, UNK
     Route: 042
  6. PLATELETS, HUMAN BLOOD [Concomitant]
     Dosage: 700 ML, UNK
  7. OMNIPAQUE [Concomitant]
     Indication: CATHETERISATION CARDIAC
     Dosage: 132 ML, UNK
     Dates: start: 20060811
  8. NORVASC [Concomitant]
  9. ATACAND [CANDESARTAN CILEXETIL] [Concomitant]
  10. ATIVAN [Concomitant]
  11. METHADONE [Concomitant]
  12. MORPHINE [Concomitant]
  13. LYRICA [Concomitant]
  14. ZOLOFT [Concomitant]
  15. RESTORIL [Concomitant]
  16. MIRALAX [Concomitant]
  17. SYNTHROID [Concomitant]
  18. MIDAZOLAM [Concomitant]
  19. SUFENTA [Concomitant]
     Dosage: UNK
     Dates: start: 20060816, end: 20060816
  20. PAVULON [Concomitant]
     Dosage: UNK
     Dates: start: 20060816, end: 20060816
  21. ETOMIDATE [Concomitant]
     Dosage: UNK
     Dates: start: 20060816, end: 20060816
  22. PROPOFOL [Concomitant]
  23. LASIX [Concomitant]
     Dosage: 20 MG, UNK
     Dates: start: 20060816, end: 20060816
  24. MILRINONE [Concomitant]
     Dosage: UNK
     Dates: start: 20060816, end: 20060816
  25. NORMOSOL [Concomitant]
     Dosage: 300 ML, UNK
     Dates: start: 20060816, end: 20060816
  26. MANNITOL [Concomitant]
     Dosage: 25 G, UNK
     Dates: start: 20060816, end: 20060816
  27. HEPARIN [Concomitant]
     Dosage: 10000 U, UNK
     Dates: start: 20060816, end: 20060816
  28. CARDIOPLEGIA [Concomitant]
     Dosage: 500 ML, UNK
     Route: 042
     Dates: start: 20060816, end: 20060816
  29. LIDOCAINE [Concomitant]
     Dosage: 200 MG, UNK
     Dates: start: 20060816, end: 20060816
  30. PROTAMINE [Concomitant]
     Dosage: 500 MG, UNK
     Dates: start: 20060816, end: 20060816

REACTIONS (12)
  - Multi-organ failure [Unknown]
  - Renal injury [Unknown]
  - Renal failure [Unknown]
  - Injury [Unknown]
  - Anxiety [Unknown]
  - Injury [Unknown]
  - Fear [Unknown]
  - Pain [Unknown]
  - Depression [Unknown]
  - Emotional distress [Unknown]
  - Fear of death [Unknown]
  - Nervousness [Unknown]
